FAERS Safety Report 15599987 (Version 4)
Quarter: 2018Q4

REPORT INFORMATION
  Report Type: Spontaneous
  Country: ES (occurrence: ES)
  Receive Date: 20181108
  Receipt Date: 20181122
  Transmission Date: 20190205
  Serious: Yes (Other)
  Sender: FDA-Public Use
  Company Number: ES-AUROBINDO-AUR-APL-2018-054056

PATIENT
  Age: 59 Year
  Sex: Male

DRUGS (12)
  1. LEVETIRACETAM. [Suspect]
     Active Substance: LEVETIRACETAM
     Indication: PARTIAL SEIZURES
     Dosage: TWO LOADING DOSES OF 1 G
     Route: 065
     Dates: start: 201702
  2. LACOSAMIDE. [Suspect]
     Active Substance: LACOSAMIDE
     Indication: PARTIAL SEIZURES
     Dosage: UNK
     Route: 065
     Dates: start: 2018, end: 201803
  3. VALPROATE SODIUM. [Suspect]
     Active Substance: VALPROATE SODIUM
     Indication: EPILEPSY
     Dosage: 1500 MILLIGRAM, ONCE A DAY
     Route: 065
     Dates: start: 201801, end: 2018
  4. DEXCHLORPHENIRAMINE [Concomitant]
     Active Substance: DEXCHLORPHENIRAMINE
     Indication: PRODUCT USED FOR UNKNOWN INDICATION
     Dosage: UNK
     Route: 065
  5. LACOSAMIDE. [Suspect]
     Active Substance: LACOSAMIDE
     Indication: EPILEPSY
     Dosage: 100 MG, 2X/DAY (BID)
     Route: 048
     Dates: start: 201801, end: 2018
  6. PHENYTOIN. [Suspect]
     Active Substance: PHENYTOIN
     Indication: PARTIAL SEIZURES
  7. VALPROATE SODIUM. [Suspect]
     Active Substance: VALPROATE SODIUM
     Indication: PARTIAL SEIZURES
  8. PHENYTOIN. [Suspect]
     Active Substance: PHENYTOIN
     Indication: EPILEPSY
     Dosage: LOADING DOSE: 1 G
     Route: 048
     Dates: start: 2018, end: 2018
  9. VALPROATE SODIUM. [Suspect]
     Active Substance: VALPROATE SODIUM
     Indication: PARTIAL SEIZURES
  10. METHYLPREDNISOLONE. [Concomitant]
     Active Substance: METHYLPREDNISOLONE
     Indication: PRODUCT USED FOR UNKNOWN INDICATION
     Dosage: UNK
     Route: 065
  11. LEVETIRACETAM. [Suspect]
     Active Substance: LEVETIRACETAM
     Indication: EPILEPSY
  12. CLOBAZAM. [Suspect]
     Active Substance: CLOBAZAM
     Indication: EPILEPSY
     Dosage: 10 MILLIGRAM, TWO TIMES A DAY, 10 MG, BID
     Route: 065

REACTIONS (5)
  - Eosinophilia [Unknown]
  - Rash generalised [Unknown]
  - Leukopenia [Unknown]
  - Drug reaction with eosinophilia and systemic symptoms [Unknown]
  - Rash [Unknown]

NARRATIVE: CASE EVENT DATE: 2017
